FAERS Safety Report 4879050-7 (Version None)
Quarter: 2005Q4

REPORT INFORMATION
  Report Type: 
  Country: None (occurrence: None)
  Receive Date: 20051209
  Receipt Date: 20050421
  Transmission Date: 20060501
  Serious: Yes (Other)
  Sender: FDA-Public Use
  Company Number: USA-2005-0019290

PATIENT
  Age: 52 Year
  Sex: Male
  Weight: 71.7 kg

DRUGS (1)
  1. OXYCONTIN [Suspect]
     Indication: PAIN
     Dosage: 100 MG

REACTIONS (5)
  - DRUG DEPENDENCE [None]
  - EUPHORIC MOOD [None]
  - HYPERHIDROSIS [None]
  - INADEQUATE ANALGESIA [None]
  - PAIN [None]
